FAERS Safety Report 15042017 (Version 1)
Quarter: 2018Q2

REPORT INFORMATION
  Report Type: Spontaneous
  Country: US (occurrence: US)
  Receive Date: 20180621
  Receipt Date: 20180621
  Transmission Date: 20180711
  Serious: No
  Sender: FDA-Public Use
  Company Number: US-PFIZER INC-2018251686

PATIENT
  Age: 31 Year
  Sex: Male

DRUGS (1)
  1. FELDENE [Suspect]
     Active Substance: PIROXICAM
     Dosage: UNK
     Route: 048

REACTIONS (4)
  - Pruritus [Unknown]
  - Rash [Unknown]
  - Urticaria [Unknown]
  - Drug hypersensitivity [Unknown]
